FAERS Safety Report 10485575 (Version 2)
Quarter: 2014Q4

REPORT INFORMATION
  Report Type: Spontaneous
  Country: GB (occurrence: GB)
  Receive Date: 20141001
  Receipt Date: 20141125
  Transmission Date: 20150528
  Serious: Yes (Hospitalization)
  Sender: FDA-Public Use
  Company Number: GB-ROCHE-1468330

PATIENT
  Age: 47 Year
  Sex: Female
  Weight: 72 kg

DRUGS (16)
  1. FLUOXETINE [Concomitant]
     Active Substance: FLUOXETINE\FLUOXETINE HYDROCHLORIDE
     Route: 048
  2. PHENYTOIN. [Concomitant]
     Active Substance: PHENYTOIN
  3. ACICLOVIR [Concomitant]
     Active Substance: ACYCLOVIR
  4. CEFOTAXIME [Concomitant]
     Active Substance: CEFOTAXIME\CEFOTAXIME SODIUM
  5. LACOSAMIDE [Concomitant]
     Active Substance: LACOSAMIDE
  6. ASPIRIN. [Concomitant]
     Active Substance: ASPIRIN
     Indication: MIGRAINE
     Dosage: AS REQUIRED
     Route: 065
  7. LEVETIRACETAM. [Concomitant]
     Active Substance: LEVETIRACETAM
     Route: 065
  8. DOMPERIDONE [Concomitant]
     Active Substance: DOMPERIDONE
  9. CYCLIZINE [Concomitant]
     Active Substance: CYCLIZINE
  10. PARACETAMOL [Concomitant]
     Active Substance: ACETAMINOPHEN
     Indication: PAIN
     Dosage: PRN
     Route: 048
  11. AMITRIPTYLINE [Concomitant]
     Active Substance: AMITRIPTYLINE
     Indication: FIBROMYALGIA
     Route: 048
     Dates: start: 20050607
  12. PHENOBARBITONE [Concomitant]
     Active Substance: PHENOBARBITAL
  13. TRIMETHOPRIM. [Concomitant]
     Active Substance: TRIMETHOPRIM
  14. ONDANSETRON [Concomitant]
     Active Substance: ONDANSETRON
  15. ROACTEMRA [Suspect]
     Active Substance: TOCILIZUMAB
     Indication: RHEUMATOID ARTHRITIS
     Route: 042
     Dates: start: 20120314, end: 20140221
  16. SODIUM VALPROATE [Concomitant]
     Active Substance: VALPROATE SODIUM

REACTIONS (9)
  - Urinary tract infection [Unknown]
  - Neutropenia [Unknown]
  - Malaise [Unknown]
  - Nausea [Unknown]
  - Migraine [Unknown]
  - Dizziness [Unknown]
  - Headache [Unknown]
  - Seizure [Recovered/Resolved]
  - Somnolence [Unknown]

NARRATIVE: CASE EVENT DATE: 20140221
